FAERS Safety Report 7168594-3 (Version None)
Quarter: 2010Q4

REPORT INFORMATION
  Report Type: 
  Country: None (occurrence: None)
  Receive Date: 20101216
  Receipt Date: 20100121
  Transmission Date: 20110411
  Serious: No
  Sender: FDA-Public Use
  Company Number: US-AMGEN-KDL387746

PATIENT

DRUGS (9)
  1. ENBREL [Suspect]
     Indication: PRODUCT USED FOR UNKNOWN INDICATION
     Dosage: 25 MG, QWK
     Route: 058
  2. INSULIN GLARGINE [Concomitant]
     Dosage: 100 ML, UNK
  3. LISINOPRIL [Concomitant]
     Dosage: 5 MG, UNK
  4. FLUOXETINE [Concomitant]
     Dosage: 10 MG, UNK
  5. INSULIN ASPART [Concomitant]
     Dosage: 100 ML, UNK
  6. LEVOTHYROXINE SODIUM [Concomitant]
     Dosage: 88 A?G, UNK
  7. LACTOBACILLUS ACIDOPHILUS [Concomitant]
     Dosage: UNK UNK, UNK
  8. MULTI-VITAMINS [Concomitant]
     Dosage: UNK UNK, UNK
  9. GLUCOSAMINE W/CHONDROITIN SULFATES [Concomitant]
     Dosage: UNK UNK, UNK

REACTIONS (1)
  - PLEURITIC PAIN [None]
